FAERS Safety Report 5964592-3 (Version None)
Quarter: 2008Q4

REPORT INFORMATION
  Report Type: 
  Country: None (occurrence: None)
  Receive Date: 20081125
  Receipt Date: 20081119
  Transmission Date: 20090506
  Serious: Yes (Hospitalization)
  Sender: FDA-Public Use
  Company Number: US-JNJFOC-20081105232

PATIENT
  Sex: Female
  Weight: 50.35 kg

DRUGS (1)
  1. DURAGESIC-100 [Suspect]
     Indication: HEADACHE
     Route: 062

REACTIONS (5)
  - ARRHYTHMIA [None]
  - BLOOD POTASSIUM INCREASED [None]
  - HYPERTENSION [None]
  - INCORRECT DRUG ADMINISTRATION DURATION [None]
  - RENAL FAILURE [None]
